FAERS Safety Report 5992149-7 (Version None)
Quarter: 2008Q4

REPORT INFORMATION
  Report Type: 
  Country: None (occurrence: None)
  Receive Date: 20081202
  Receipt Date: 20071016
  Transmission Date: 20090506
  Serious: Yes (Other)
  Sender: FDA-Public Use
  Company Number: WAES 0706USA01999

PATIENT
  Age: 63 Year
  Sex: Female

DRUGS (3)
  1. FOSAMAX [Suspect]
     Indication: OSTEOPOROSIS
     Dosage: 70 MG/WKY/PO
     Route: 048
     Dates: start: 20001115, end: 20070401
  2. SYNTHROID [Concomitant]
  3. LITHIUM CARBONATE [Concomitant]

REACTIONS (6)
  - ACTINOMYCOSIS [None]
  - BREAST DISORDER [None]
  - GASTROOESOPHAGEAL REFLUX DISEASE [None]
  - OSTEONECROSIS [None]
  - PAIN IN JAW [None]
  - TOOTH INFECTION [None]
